FAERS Safety Report 8025513-5 (Version None)
Quarter: 2012Q1

REPORT INFORMATION
  Report Type: 
  Country: None (occurrence: None)
  Receive Date: 20120105
  Receipt Date: 20111227
  Transmission Date: 20120608
  Serious: Yes (Hospitalization)
  Sender: FDA-Public Use
  Company Number: NL-MEDIMMUNE-MEDI-0013849

PATIENT
  Sex: Male
  Weight: 7.38 kg

DRUGS (2)
  1. SYNAGIS [Suspect]
     Indication: BRONCHOPULMONARY DYSPLASIA
     Route: 030
     Dates: start: 20110906, end: 20111004
  2. SYNAGIS [Suspect]
     Route: 030
     Dates: start: 20111101, end: 20111101

REACTIONS (3)
  - SPUTUM INCREASED [None]
  - NASOPHARYNGITIS [None]
  - DYSPNOEA [None]
